FAERS Safety Report 5691130-5 (Version None)
Quarter: 2008Q2

REPORT INFORMATION
  Report Type: 
  Country: None (occurrence: None)
  Receive Date: 20080401
  Receipt Date: 20080317
  Transmission Date: 20081010
  Serious: Yes (Other)
  Sender: FDA-Public Use
  Company Number: AT-AMGEN-US272033

PATIENT
  Sex: Female
  Weight: 56 kg

DRUGS (1)
  1. ENBREL [Suspect]
     Indication: DRUG USE FOR UNKNOWN INDICATION
     Dosage: 50 MG (FREQUENCY UNSPECIFIED)
     Route: 058
     Dates: start: 20071212, end: 20071222

REACTIONS (3)
  - DERMATITIS ALLERGIC [None]
  - INJECTION SITE ERYTHEMA [None]
  - INJECTION SITE PRURITUS [None]
